FAERS Safety Report 15909025 (Version 2)
Quarter: 2019Q1

REPORT INFORMATION
  Report Type: Report from Study
  Country: US (occurrence: US)
  Receive Date: 20190204
  Receipt Date: 20190214
  Transmission Date: 20190417
  Serious: Yes (Death)
  Sender: FDA-Public Use
  Company Number: US-ACTELION-A-NJ2019-185148

PATIENT
  Age: 4 Week
  Sex: Male

DRUGS (3)
  1. BOSENTAN TABLET 32 MG PED US [Suspect]
     Active Substance: BOSENTAN
     Indication: PULMONARY ARTERIAL HYPERTENSION
     Dosage: 4 MG, QD
     Route: 048
     Dates: start: 20190111, end: 20190113
  2. REVATIO [Concomitant]
     Active Substance: SILDENAFIL CITRATE
     Dosage: 3.4 MG, TID
     Route: 048
     Dates: start: 20190102, end: 20190113
  3. REMODULIN [Concomitant]
     Active Substance: TREPROSTINIL
     Dosage: 64 NG/KG, PER MIN
     Dates: start: 20190104, end: 20190113

REACTIONS (6)
  - Congenital diaphragmatic hernia [Fatal]
  - Pulmonary hypertension [Fatal]
  - Renal failure [Fatal]
  - Respiratory distress [Fatal]
  - Haemorrhage intracranial [Fatal]
  - Bradycardia [Fatal]
